FAERS Safety Report 9756535 (Version 1)
Quarter: 2013Q4

REPORT INFORMATION
  Report Type: Spontaneous
  Country: US (occurrence: US)
  Receive Date: 20131213
  Receipt Date: 20131213
  Transmission Date: 20140711
  Serious: No
  Sender: FDA-Public Use
  Company Number: US-GLAXOSMITHKLINE-A1044850A

PATIENT
  Age: 33 Year
  Sex: Female

DRUGS (2)
  1. NICODERM CQ CLEAR 21MG [Suspect]
     Indication: EX-TOBACCO USER
     Route: 062
  2. NICODERM CQ 21MG [Suspect]
     Indication: EX-TOBACCO USER
     Route: 062

REACTIONS (4)
  - Malaise [Recovered/Resolved]
  - Feeling jittery [Recovered/Resolved]
  - Vomiting [Recovered/Resolved]
  - Drug ineffective [Unknown]
